FAERS Safety Report 5354825-9 (Version None)
Quarter: 2007Q2

REPORT INFORMATION
  Report Type: 
  Country: None (occurrence: None)
  Receive Date: 20070611
  Receipt Date: 20070530
  Transmission Date: 20071010
  Serious: Yes (Other)
  Sender: FDA-Public Use
  Company Number: TPA2007A01107

PATIENT
  Age: 47 Year
  Sex: Female
  Weight: 97.977 kg

DRUGS (7)
  1. ACTOS [Suspect]
     Indication: DIABETES PROPHYLAXIS
     Dosage: 15 MG, 1 IN 1 D, PER ORAL
     Route: 048
     Dates: start: 20070329, end: 20070529
  2. AVALIDE [Concomitant]
  3. NEXIUM [Concomitant]
  4. XANAX [Concomitant]
  5. NITROGLYCERIN [Concomitant]
  6. UNK ANTI-ANXIETY [Concomitant]
  7. CYMBALTA [Concomitant]

REACTIONS (8)
  - BLOOD PRESSURE INCREASED [None]
  - CHEST PAIN [None]
  - CONDITION AGGRAVATED [None]
  - HEADACHE [None]
  - JOINT SWELLING [None]
  - MENTAL DISORDER [None]
  - NO THERAPEUTIC RESPONSE [None]
  - OEDEMA PERIPHERAL [None]
